FAERS Safety Report 12184676 (Version 1)
Quarter: 2016Q1

REPORT INFORMATION
  Report Type: Spontaneous
  Country: US (occurrence: US)
  Receive Date: 20160316
  Receipt Date: 20160316
  Transmission Date: 20160526
  Serious: No
  Sender: FDA-Public Use
  Company Number: US-B.I. PHARMACEUTICALS,INC./RIDGEFIELD-2016-BI-08630BP

PATIENT
  Age: 64 Year
  Sex: Female

DRUGS (2)
  1. GLYXAMBI [Suspect]
     Active Substance: EMPAGLIFLOZIN\LINAGLIPTIN
     Indication: DIABETES MELLITUS
     Dosage: DOSE PER APPLICATION:10/5 MG
     Route: 048
     Dates: start: 20160129, end: 20160208
  2. BENECAR HCT [Concomitant]
     Indication: HYPERTENSION
     Dosage: 25 MG
     Route: 048

REACTIONS (8)
  - Blood glucose abnormal [Unknown]
  - Headache [Recovered/Resolved]
  - Anxiety [Recovered/Resolved]
  - Abnormal loss of weight [Recovered/Resolved]
  - Asthenia [Recovered/Resolved]
  - Rash generalised [Recovered/Resolved]
  - Dizziness [Recovered/Resolved]
  - Depressed mood [Unknown]

NARRATIVE: CASE EVENT DATE: 20160129
